FAERS Safety Report 7996323-X (Version None)
Quarter: 2011Q4

REPORT INFORMATION
  Report Type: 
  Country: None (occurrence: None)
  Receive Date: 20111220
  Receipt Date: 20111205
  Transmission Date: 20120403
  Serious: Yes (Hospitalization)
  Sender: FDA-Public Use
  Company Number: CN-JUTA GMBH-2011-21584

PATIENT
  Age: 55 Year
  Sex: Female

DRUGS (7)
  1. CYCLOSPORINE [Suspect]
     Dosage: 100 MG, DAILY
     Dates: start: 20080430, end: 20080507
  2. CYCLOSPORINE [Suspect]
     Dosage: 175 MG, BID
     Route: 048
     Dates: start: 20080407
  3. CYCLOSPORINE [Suspect]
     Dosage: 200 MG, QPM
  4. SIMVASTATIN [Suspect]
     Indication: PRODUCT USED FOR UNKNOWN INDICATION
     Dosage: 20 MG, DAILY
     Dates: start: 20080404, end: 20080508
  5. CYCLOSPORINE [Suspect]
     Dosage: 225 MG, BID
     Dates: start: 20080403
  6. CYCLOSPORINE [Suspect]
     Indication: PRODUCT USED FOR UNKNOWN INDICATION
     Dosage: 250 MG, DAILY
     Dates: start: 20080323
  7. CYCLOSPORINE [Suspect]
     Dosage: 225 MG, QAM
     Dates: start: 20080404

REACTIONS (3)
  - MYOPATHY [None]
  - DRUG INTERACTION [None]
  - DRUG LEVEL INCREASED [None]
